FAERS Safety Report 25720290 (Version 2)
Quarter: 2025Q4

REPORT INFORMATION
  Report Type: Report from Study
  Country: US (occurrence: US)
  Receive Date: 20250825
  Receipt Date: 20251015
  Transmission Date: 20260117
  Serious: Yes (Hospitalization, Other)
  Sender: ACADIA PHARMACEUTICALS
  Company Number: US-ACADIA PHARMACEUTICALS INC.-ACA-2025-PIM-009431

PATIENT
  Age: 75 Year
  Sex: Male

DRUGS (13)
  1. NUPLAZID [Suspect]
     Active Substance: PIMAVANSERIN TARTRATE
     Indication: Parkinson^s disease psychosis
     Dosage: 34 MILLIGRAM, QD
     Route: 048
     Dates: start: 20240422
  2. DULOXETINE [Concomitant]
     Active Substance: DULOXETINE
  3. QUETIAPINE [Concomitant]
     Active Substance: QUETIAPINE
  4. VITAMIN D3 [Concomitant]
     Active Substance: CHOLECALCIFEROL
  5. VITAMIN C [Concomitant]
     Active Substance: ASCORBIC ACID
  6. SINEMET [Concomitant]
     Active Substance: CARBIDOPA\LEVODOPA
  7. LEVOCETIRIZINE [Concomitant]
     Active Substance: LEVOCETIRIZINE
  8. NEXIUM I.V. [Concomitant]
     Active Substance: ESOMEPRAZOLE SODIUM
  9. LIVALO [Concomitant]
     Active Substance: PITAVASTATIN CALCIUM
  10. ASPIRIN [Concomitant]
     Active Substance: ASPIRIN
  11. IPRATROPIUM [Concomitant]
     Active Substance: IPRATROPIUM
  12. METHENAMINE [Concomitant]
     Active Substance: METHENAMINE
  13. RIVASTIGMINE [Concomitant]
     Active Substance: RIVASTIGMINE

REACTIONS (3)
  - Urinary tract infection [Not Recovered/Not Resolved]
  - Sepsis [Not Recovered/Not Resolved]
  - Dysgraphia [Not Recovered/Not Resolved]

NARRATIVE: CASE EVENT DATE: 20250818
